FAERS Safety Report 6818391-0 (Version None)
Quarter: 2010Q3

REPORT INFORMATION
  Report Type: 
  Country: None (occurrence: None)
  Receive Date: 20100706
  Receipt Date: 20080829
  Transmission Date: 20110219
  Serious: No
  Sender: FDA-Public Use
  Company Number: US-PFIZER INC-2005119124

PATIENT
  Sex: Female
  Weight: 76.2 kg

DRUGS (11)
  1. ZITHROMAX [Suspect]
     Indication: SINUSITIS
     Route: 048
  2. ZITHROMAX [Suspect]
     Indication: EAR INFECTION
  3. ZITHROMAX [Suspect]
     Indication: INGROWING NAIL
  4. MECLIZINE [Concomitant]
     Indication: VERTIGO
     Route: 048
  5. FOSAMAX [Concomitant]
     Route: 048
  6. SYNTHROID [Concomitant]
     Route: 048
  7. FLORINEF [Concomitant]
     Route: 048
  8. CLONAZEPAM [Concomitant]
     Route: 048
  9. WELLBUTRIN [Concomitant]
     Route: 048
  10. ALLEGRA [Concomitant]
     Route: 048
  11. VITAMIN B-12 [Concomitant]
     Route: 030

REACTIONS (7)
  - DIZZINESS [None]
  - EAR INFECTION [None]
  - HEADACHE [None]
  - NERVOUSNESS [None]
  - PARONYCHIA [None]
  - SINUSITIS [None]
  - TENSION [None]
